FAERS Safety Report 6197331-4 (Version None)
Quarter: 2009Q2

REPORT INFORMATION
  Report Type: 
  Country: None (occurrence: None)
  Receive Date: 20090521
  Receipt Date: 20090508
  Transmission Date: 20091009
  Serious: No
  Sender: FDA-Public Use
  Company Number: US-BAYER-200920653NA

PATIENT
  Sex: Female

DRUGS (2)
  1. ADALAT CC [Suspect]
     Indication: DRUG USE FOR UNKNOWN INDICATION
  2. ATROVENT [Concomitant]
     Route: 055

REACTIONS (1)
  - BLOOD PRESSURE INCREASED [None]
